FAERS Safety Report 12925948 (Version 2)
Quarter: 2017Q1

REPORT INFORMATION
  Report Type: Spontaneous
  Country: US (occurrence: US)
  Receive Date: 20161108
  Receipt Date: 20170127
  Transmission Date: 20170428
  Serious: Yes (Other)
  Sender: FDA-Public Use
  Company Number: US-SA-2016SA177984

PATIENT
  Age: 67 Year
  Sex: Female

DRUGS (5)
  1. PRALUENT [Suspect]
     Active Substance: ALIROCUMAB
     Indication: TYPE V HYPERLIPIDAEMIA
     Route: 058
     Dates: start: 2016
  2. NORVASC [Concomitant]
     Active Substance: AMLODIPINE BESYLATE
  3. ALIROCUMAB PREFILLED PEN [Concomitant]
     Active Substance: ALIROCUMAB
     Dates: start: 2016
  4. LEVOTHYROXINE. [Concomitant]
     Active Substance: LEVOTHYROXINE
  5. METOPROLOL. [Concomitant]
     Active Substance: METOPROLOL

REACTIONS (11)
  - Pain in extremity [Not Recovered/Not Resolved]
  - Cyst rupture [Unknown]
  - Burning sensation [Not Recovered/Not Resolved]
  - Musculoskeletal pain [Unknown]
  - Hordeolum [Unknown]
  - Eye haemorrhage [Unknown]
  - Insomnia [Unknown]
  - Pruritus [Not Recovered/Not Resolved]
  - Myalgia [Unknown]
  - Pain in extremity [Unknown]
  - Erythema [Unknown]

NARRATIVE: CASE EVENT DATE: 2016
